FAERS Safety Report 18181122 (Version 1)
Quarter: 2020Q3

REPORT INFORMATION
  Report Type: Spontaneous
  Country: CN (occurrence: CN)
  Receive Date: 20200821
  Receipt Date: 20200821
  Transmission Date: 20201103
  Serious: Yes (Death)
  Sender: FDA-Public Use
  Company Number: CN-BEIGENE AUS PTY LTD-BGN-2020-001209

PATIENT

DRUGS (1)
  1. BRUKINSA [Suspect]
     Active Substance: ZANUBRUTINIB
     Indication: CHRONIC LYMPHOCYTIC LEUKAEMIA
     Dosage: 160 MILLIGRAM, BID
     Route: 048
     Dates: start: 20200704

REACTIONS (2)
  - Platelet count decreased [Not Recovered/Not Resolved]
  - Disease progression [Fatal]

NARRATIVE: CASE EVENT DATE: 20200711
